FAERS Safety Report 5375253-6 (Version None)
Quarter: 2007Q2

REPORT INFORMATION
  Report Type: 
  Country: None (occurrence: None)
  Receive Date: 20070629
  Receipt Date: 20061018
  Transmission Date: 20071010
  Serious: Yes (Other)
  Sender: FDA-Public Use
  Company Number: US-ASTRAZENECA-2006UW20147

PATIENT
  Age: 65 Year
  Sex: Female
  Weight: 83.5 kg

DRUGS (1)
  1. TAMOXIFEN CITRATE [Suspect]
     Indication: BREAST CANCER
     Route: 048
     Dates: start: 20040901

REACTIONS (2)
  - UTERINE HAEMORRHAGE [None]
  - VAGINAL DISCHARGE [None]
